FAERS Safety Report 9465241 (Version 2)
Quarter: 2013Q3

REPORT INFORMATION
  Report Type: Report from Study
  Country: US (occurrence: US)
  Receive Date: 20130819
  Receipt Date: 20130819
  Transmission Date: 20140515
  Serious: Yes (Other)
  Sender: FDA-Public Use
  Company Number: US-ROCHE-1255636

PATIENT
  Age: 54 Year
  Sex: Male
  Weight: 106.24 kg

DRUGS (11)
  1. TOCILIZUMAB [Suspect]
     Indication: RHEUMATOID ARTHRITIS
     Route: 042
     Dates: start: 20130501
  2. TOCILIZUMAB [Suspect]
     Route: 042
     Dates: start: 20130531
  3. PREDNISONE [Concomitant]
     Route: 048
  4. ADVIL [Concomitant]
     Route: 065
  5. METHOTREXATE [Concomitant]
     Dosage: 0.66 CC
     Route: 058
  6. FOLIC ACID [Concomitant]
     Route: 048
  7. LEVSIN [Concomitant]
     Route: 065
  8. DUEXIS [Concomitant]
     Dosage: 800-26.6 MG, 1 TABLET
     Route: 048
  9. ZYRTEC [Concomitant]
     Route: 065
  10. FLONASE [Concomitant]
     Route: 065
  11. VITAMIN B12 [Concomitant]
     Route: 065

REACTIONS (4)
  - Anaphylactic reaction [Unknown]
  - Chest discomfort [Unknown]
  - Back pain [Recovered/Resolved]
  - Chest pain [Recovered/Resolved]
